FAERS Safety Report 5948264-7 (Version None)
Quarter: 2008Q4

REPORT INFORMATION
  Report Type: 
  Country: None (occurrence: None)
  Receive Date: 20081111
  Receipt Date: 20081103
  Transmission Date: 20090506
  Serious: Yes (Other)
  Sender: FDA-Public Use
  Company Number: US-TEVA-180042USA

PATIENT
  Age: 71 Year
  Sex: Male

DRUGS (3)
  1. METOCLOPRAMIDE [Suspect]
  2. SINEMET [Concomitant]
  3. ARTANE [Concomitant]

REACTIONS (2)
  - PARKINSON'S DISEASE [None]
  - TOXIC ENCEPHALOPATHY [None]
